FAERS Safety Report 4946453-1 (Version None)
Quarter: 2006Q1

REPORT INFORMATION
  Report Type: 
  Country: None (occurrence: None)
  Receive Date: 20060313
  Receipt Date: 20060228
  Transmission Date: 20060701
  Serious: Yes (Disabling, Other)
  Sender: FDA-Public Use
  Company Number: 2006032143

PATIENT
  Sex: Female

DRUGS (6)
  1. XANAX [Suspect]
     Indication: ANXIETY
     Dosage: 6 MG (2 MG, 3 IN 1 D), ORAL
     Route: 048
     Dates: start: 19940101
  2. ZOLOFT [Suspect]
     Indication: DEPRESSION
     Dosage: 200 MG (1 D), ORAL
     Route: 048
     Dates: start: 19940101
  3. LORCET-HD [Concomitant]
  4. SOMA [Concomitant]
  5. NORTRIPTYLINE HCL [Concomitant]
  6. KLONOPIN [Concomitant]

REACTIONS (7)
  - ASTHMA [None]
  - BACK DISORDER [None]
  - CONDITION AGGRAVATED [None]
  - DEPRESSION [None]
  - ECONOMIC PROBLEM [None]
  - JOINT INJURY [None]
  - MEMORY IMPAIRMENT [None]
